FAERS Safety Report 7074580-4 (Version None)
Quarter: 2010Q4

REPORT INFORMATION
  Report Type: 
  Country: None (occurrence: None)
  Receive Date: 20101029
  Receipt Date: 20100505
  Transmission Date: 20110411
  Serious: No
  Sender: FDA-Public Use
  Company Number: A0850973A

PATIENT
  Age: 57 Year
  Sex: Male

DRUGS (1)
  1. SUMATRIPTAN NASAL SPRAY [Suspect]
     Indication: HEADACHE
     Dosage: 20MG AS REQUIRED
     Route: 045
     Dates: start: 20080701

REACTIONS (4)
  - PRODUCT QUALITY ISSUE [None]
  - RHINORRHOEA [None]
  - THERAPEUTIC RESPONSE DECREASED [None]
  - THROAT IRRITATION [None]
